FAERS Safety Report 11240687 (Version 1)
Quarter: 2015Q3

REPORT INFORMATION
  Report Type: Other
  Country: US (occurrence: US)
  Receive Date: 20150706
  Receipt Date: 20150706
  Transmission Date: 20151125
  Serious: Yes (Hospitalization)
  Sender: FDA-Public Use
  Company Number: US-SHIRE-US201506721

PATIENT
  Sex: Female
  Weight: 61.22 kg

DRUGS (13)
  1. TYLENOL [Concomitant]
     Active Substance: ACETAMINOPHEN
     Indication: PRODUCT USED FOR UNKNOWN INDICATION
     Dosage: 325 MG, OTHER (ONE DOSE AS DIRECTED)
     Route: 065
     Dates: start: 20140319
  2. LORAZEPAM. [Concomitant]
     Active Substance: LORAZEPAM
     Indication: PRODUCT USED FOR UNKNOWN INDICATION
     Dosage: 2 MG, OTHER (ONE DOSE AS DIRECTED)
     Route: 065
     Dates: start: 20140319
  3. EPIPEN [Concomitant]
     Active Substance: EPINEPHRINE
     Indication: ANAPHYLACTIC REACTION
     Dosage: 0.3 MG, OTHER (AS DIRCETED)
     Route: 030
     Dates: start: 20140903
  4. PROZAC [Concomitant]
     Active Substance: FLUOXETINE HYDROCHLORIDE
     Indication: PRODUCT USED FOR UNKNOWN INDICATION
     Dosage: 40 MG, OTHER (ONE DOSE AS DIRECTED)
     Route: 065
     Dates: start: 20140319
  5. FIRAZYR [Suspect]
     Active Substance: ICATIBANT ACETATE
     Indication: HEREDITARY ANGIOEDEMA
     Dosage: 30 MG, OTHER (AS DIRECTED)
     Route: 058
     Dates: start: 20150515
  6. CINRYZE [Suspect]
     Active Substance: HUMAN C1-ESTERASE INHIBITOR
     Indication: PROPHYLAXIS
     Dosage: UNK, UNKNOWN
     Route: 042
  7. ISOTONIC SODIUM CHLORIDE SOLUTION [Concomitant]
     Active Substance: SODIUM CHLORIDE
     Indication: PRODUCT USED FOR UNKNOWN INDICATION
     Dosage: (0.9%) UNK, OTHER (AS DIRECTED)
     Route: 042
     Dates: start: 20140903
  8. PROTONIX                           /00661201/ [Concomitant]
     Indication: PRODUCT USED FOR UNKNOWN INDICATION
     Dosage: 40 MG, OTHER (ONE DOSE AS DIRECTED)
     Route: 065
     Dates: start: 20140319
  9. ZOFRAN [Concomitant]
     Active Substance: ONDANSETRON HYDROCHLORIDE
     Indication: PRODUCT USED FOR UNKNOWN INDICATION
     Dosage: 4 MG, OTHER (ONE DOSE AS DIRECTED)
     Route: 065
     Dates: start: 20140319
  10. CINRYZE [Suspect]
     Active Substance: HUMAN C1-ESTERASE INHIBITOR
     Indication: HEREDITARY ANGIOEDEMA
     Dosage: 1500 UNITS, OTHER (EVERY 2 DAYS)
     Route: 042
     Dates: start: 20140903
  11. KALBITOR [Concomitant]
     Active Substance: ECALLANTIDE
     Indication: PRODUCT USED FOR UNKNOWN INDICATION
     Dosage: (10 MG/ML VIAL) 1 DF, OTHER (AS DIRECTED)
     Route: 065
     Dates: start: 20140319
  12. HEPARIN [Concomitant]
     Active Substance: HEPARIN SODIUM
     Indication: PRODUCT USED FOR UNKNOWN INDICATION
     Dosage: 1 DF (100 UNITS/ML), OTHER (AS DIRECTED)
     Route: 065
     Dates: start: 20140903
  13. STERILE WATER [Concomitant]
     Active Substance: WATER
     Indication: MEDICATION DILUTION
     Dosage: 5 ML, OTHER (AS DIRECTED)
     Route: 042
     Dates: start: 20140903

REACTIONS (4)
  - Inappropriate schedule of drug administration [Unknown]
  - Headache [Unknown]
  - Prescribed overdose [Unknown]
  - Sinusitis [Unknown]
